FAERS Safety Report 8599244-7 (Version None)
Quarter: 2012Q3

REPORT INFORMATION
  Report Type: 
  Country: None (occurrence: None)
  Receive Date: 20120816
  Receipt Date: 20120502
  Transmission Date: 20120928
  Serious: No
  Sender: FDA-Public Use
  Company Number: US-AMGEN-USASP2012018787

PATIENT
  Age: 58 Year
  Sex: Male

DRUGS (1)
  1. NEUPOGEN [Suspect]
     Indication: AUTOIMMUNE NEUTROPENIA
     Dosage: 150 MUG, 2 TIMES/WK
     Route: 058

REACTIONS (11)
  - FEELING ABNORMAL [None]
  - TOOTH LOSS [None]
  - STOMATITIS [None]
  - SLUGGISHNESS [None]
  - WHITE BLOOD CELL COUNT DECREASED [None]
  - ASTHENIA [None]
  - THERAPEUTIC RESPONSE DECREASED [None]
  - CHEILITIS [None]
  - NEUTROPENIA [None]
  - MEDICAL DEVICE DISCOMFORT [None]
  - FATIGUE [None]
